FAERS Safety Report 9616757 (Version 1)
Quarter: 2013Q4

REPORT INFORMATION
  Report Type: Spontaneous
  Country: GB (occurrence: GB)
  Receive Date: 20131011
  Receipt Date: 20131011
  Transmission Date: 20140711
  Serious: Yes (Hospitalization)
  Sender: FDA-Public Use
  Company Number: GB-EISAI INC-E2007-01348-SPO-GB

PATIENT
  Age: 31 Year
  Sex: Female
  Weight: 65 kg

DRUGS (8)
  1. FYCOMPA (PERAMPANEL) [Suspect]
     Indication: PRODUCT USED FOR UNKNOWN INDICATION
     Route: 048
     Dates: start: 20121106
  2. FYCOMPA (PERAMPANEL) [Suspect]
     Route: 048
     Dates: start: 201301, end: 2013
  3. FYCOMPA (PERAMPANEL) [Suspect]
     Route: 048
     Dates: start: 2013, end: 201302
  4. FYCOMPA (PERAMPANEL) [Suspect]
     Route: 048
     Dates: start: 201302, end: 2013
  5. FYCOMPA (PERAMPANEL) [Suspect]
     Route: 048
     Dates: start: 201305
  6. LEVETIRACETAM [Concomitant]
  7. CARBAMAZEPINE [Concomitant]
  8. CONTRACEPTIVE [Concomitant]
     Dosage: UNKNOWN

REACTIONS (1)
  - Intestinal obstruction [Unknown]
